FAERS Safety Report 6558487-4 (Version None)
Quarter: 2010Q1

REPORT INFORMATION
  Report Type: 
  Country: None (occurrence: None)
  Receive Date: 20100129
  Receipt Date: 20100121
  Transmission Date: 20100710
  Serious: Yes (Death)
  Sender: FDA-Public Use
  Company Number: GXKR2010GB01047

PATIENT
  Age: 44 Year
  Sex: Male

DRUGS (1)
  1. PAROXETINE (NGX) [Suspect]
     Dosage: 30 MG, QD
     Route: 065
     Dates: start: 20000101

REACTIONS (2)
  - COMPLETED SUICIDE [None]
  - DRUG DEPENDENCE [None]
